FAERS Safety Report 5336607-7 (Version None)
Quarter: 2007Q2

REPORT INFORMATION
  Report Type: 
  Country: None (occurrence: None)
  Receive Date: 20070529
  Receipt Date: 20070521
  Transmission Date: 20071010
  Serious: Yes (Death)
  Sender: FDA-Public Use
  Company Number: FR-JNJFOC-20070406299

PATIENT
  Age: 87 Year
  Sex: Female

DRUGS (2)
  1. DURAGESIC-100 [Suspect]
     Indication: PAIN
     Route: 062
     Dates: start: 20070410, end: 20070428
  2. MODURETIC 5-50 [Concomitant]
     Indication: HYPERTENSION
     Dosage: HALF A TABLET
     Route: 065

REACTIONS (2)
  - COLON CANCER [None]
  - PRURITUS GENERALISED [None]
